FAERS Safety Report 8065676-9 (Version None)
Quarter: 2012Q1

REPORT INFORMATION
  Report Type: 
  Country: None (occurrence: None)
  Receive Date: 20120124
  Receipt Date: 20120120
  Transmission Date: 20120608
  Serious: Yes (Hospitalization)
  Sender: FDA-Public Use
  Company Number: IT-PFIZER INC-2012017544

PATIENT
  Age: 61 Year
  Sex: Female

DRUGS (10)
  1. TRAMADOL HCL [Concomitant]
  2. KEPPRA [Concomitant]
     Indication: POSTICTAL STATE
     Dosage: UNK
  3. HALCION [Suspect]
     Dosage: UNK
     Route: 048
     Dates: start: 20110623, end: 20110916
  4. ZOLPIDEM [Suspect]
     Dosage: UNK
     Route: 048
     Dates: start: 20110623, end: 20110916
  5. TRUVADA [Concomitant]
     Indication: HIV INFECTION
  6. ASPIRIN [Concomitant]
  7. LORAZEPAM [Suspect]
     Dosage: 2.5 MG, DAILY
     Route: 048
     Dates: start: 20110623, end: 20110916
  8. OMEPRAZOLE [Concomitant]
  9. NORVIR [Concomitant]
  10. RIFATER [Concomitant]

REACTIONS (2)
  - COMA [None]
  - DRUG ABUSE [None]
